FAERS Safety Report 6386272-5 (Version None)
Quarter: 2009Q3

REPORT INFORMATION
  Report Type: 
  Country: None (occurrence: None)
  Receive Date: 20090929
  Receipt Date: 20090612
  Transmission Date: 20100115
  Serious: Yes (Other)
  Sender: FDA-Public Use
  Company Number: 285063

PATIENT
  Sex: Female

DRUGS (2)
  1. AVASTIN [Suspect]
     Indication: MACULAR DEGENERATION
     Dosage: 1 INJECTION, INTRAVITREAL
     Dates: start: 20090611
  2. LUCENTIS [Suspect]
     Indication: MACULAR DEGENERATION
     Dosage: 3 INJECTIONS
     Dates: start: 20061101

REACTIONS (1)
  - EYE HAEMORRHAGE [None]
